FAERS Safety Report 11124103 (Version 1)
Quarter: 2015Q2

REPORT INFORMATION
  Report Type: Spontaneous
  Country: JP (occurrence: None)
  Receive Date: 20150518
  Receipt Date: 20150518
  Transmission Date: 20150821
  Serious: Yes (Death)
  Sender: FDA-Public Use
  Company Number: FK201502279

PATIENT

DRUGS (4)
  1. ETOPOSIDE (ETOPOSIDE) (ETOPOSIDE) [Suspect]
     Active Substance: ETOPOSIDE
     Indication: DIFFUSE LARGE B-CELL LYMPHOMA
  2. MELPHALAN (MELPHALAN) (MELPHALAN) [Suspect]
     Active Substance: MELPHALAN
     Indication: DIFFUSE LARGE B-CELL LYMPHOMA
  3. RANIMUSTINE [Suspect]
     Active Substance: RANIMUSTINE
     Indication: DIFFUSE LARGE B-CELL LYMPHOMA
  4. CYTARABINE (CYTARABINE) (CYTARABINE) [Suspect]
     Active Substance: CYTARABINE
     Indication: DIFFUSE LARGE B-CELL LYMPHOMA

REACTIONS (1)
  - Interstitial lung disease [None]
